FAERS Safety Report 21986079 (Version 2)
Quarter: 2024Q3

REPORT INFORMATION
  Report Type: Other
  Country: CA (occurrence: CA)
  Receive Date: 20230213
  Receipt Date: 20240805
  Transmission Date: 20241017
  Serious: Yes (Other)
  Sender: PFIZER
  Company Number: CA-PFIZER INC-202300060488

PATIENT
  Sex: Female

DRUGS (14)
  1. AZITHROMYCIN [Suspect]
     Active Substance: AZITHROMYCIN
     Indication: Peptostreptococcus infection
     Dosage: 1 G, 1X/DAY
     Route: 048
  2. AZITHROMYCIN [Suspect]
     Active Substance: AZITHROMYCIN
     Indication: Antibiotic therapy
  3. DEXTROSE [Suspect]
     Active Substance: DEXTROSE\DEXTROSE MONOHYDRATE
     Dosage: UNK
     Route: 065
  4. AMPICILLIN [Suspect]
     Active Substance: AMPICILLIN
     Indication: Peptostreptococcus infection
     Dosage: 1 G, 1 EVERY 6 HOURS
     Route: 042
  5. AMPICILLIN [Suspect]
     Active Substance: AMPICILLIN
     Indication: Antibiotic therapy
  6. ATOSIBAN [Suspect]
     Active Substance: ATOSIBAN
     Dosage: UNK
     Route: 065
  7. BETAMETHASONE [Suspect]
     Active Substance: BETAMETHASONE\BETAMETHASONE DIPROPIONATE
     Dosage: UNK
     Route: 030
  8. GENTAMICIN [Suspect]
     Active Substance: GENTAMICIN
     Indication: Peptostreptococcus infection
     Dosage: 80 MG 1 EVERY 8 HOURS
  9. GENTAMICIN [Suspect]
     Active Substance: GENTAMICIN
     Indication: Antibiotic therapy
  10. MAGNESIUM SULFATE [Suspect]
     Active Substance: MAGNESIUM SULFATE\MAGNESIUM SULFATE HEPTAHYDRATE
     Indication: Nervous system disorder prophylaxis
     Dosage: UNK
     Route: 065
  11. AZITHROMYCIN [Suspect]
     Active Substance: AZITHROMYCIN
     Indication: Peptostreptococcus infection
     Dosage: 1 G, DAILY
     Route: 048
  12. AZITHROMYCIN [Suspect]
     Active Substance: AZITHROMYCIN
     Indication: Antibiotic therapy
     Dosage: UNK
  13. GENTAMICIN SULFATE [Suspect]
     Active Substance: GENTAMICIN SULFATE
     Indication: Peptostreptococcus infection
     Dosage: 80 MG, 3X/DAY
     Route: 042
  14. GENTAMICIN SULFATE [Suspect]
     Active Substance: GENTAMICIN SULFATE
     Indication: Antibiotic therapy
     Dosage: UNK

REACTIONS (4)
  - Delivery [Unknown]
  - Maternal exposure during pregnancy [Unknown]
  - Normal labour [Unknown]
  - Premature delivery [Unknown]
